FAERS Safety Report 16767739 (Version 1)
Quarter: 2019Q3

REPORT INFORMATION
  Report Type: Spontaneous
  Country: GB (occurrence: GB)
  Receive Date: 20190903
  Receipt Date: 20190903
  Transmission Date: 20191005
  Serious: Yes (Other)
  Sender: FDA-Public Use
  Company Number: GB-MYLANLABS-2019M1081657

PATIENT
  Age: 55 Year
  Sex: Male
  Weight: 67 kg

DRUGS (4)
  1. LANSOPRAZOLE. [Concomitant]
     Active Substance: LANSOPRAZOLE
     Dosage: 1 DOSAGE FORM, QD
     Dates: start: 20190212
  2. SALBUTAMOL [Concomitant]
     Active Substance: ALBUTEROL
     Dosage: 2 FOUR TIMES A DAY.
     Dates: start: 20160203
  3. MONTELUKAST [Suspect]
     Active Substance: MONTELUKAST SODIUM
     Indication: PRODUCT USED FOR UNKNOWN INDICATION
     Dosage: 10 MILLIGRAM, QD, AT NIGHT.
     Dates: start: 20190208
  4. FOSTAIR [Concomitant]
     Active Substance: BECLOMETHASONE\FORMOTEROL
     Dosage: 4 DOSAGE FORM, QD
     Route: 055
     Dates: start: 20170315

REACTIONS (1)
  - Bronchospasm [Recovered/Resolved]
